FAERS Safety Report 6451553-3 (Version None)
Quarter: 2009Q4

REPORT INFORMATION
  Report Type: 
  Country: None (occurrence: None)
  Receive Date: 20091123
  Receipt Date: 20091112
  Transmission Date: 20100525
  Serious: No
  Sender: FDA-Public Use
  Company Number: US-ASTRAZENECA-2009SE26434

PATIENT
  Age: 46 Year
  Sex: Male

DRUGS (8)
  1. SEROQUEL [Suspect]
     Route: 048
  2. OMEPRAZOLE [Concomitant]
  3. SIMVASTATIN [Concomitant]
  4. LOTREL [Concomitant]
     Dosage: 5/20 MG DAILY
  5. LEXAPRO [Concomitant]
  6. CHANTIX [Concomitant]
     Dosage: TWO TIMES A DAY
  7. PHENTERMINE [Concomitant]
  8. OTHER MEDS [Concomitant]

REACTIONS (1)
  - BLOOD GLUCOSE INCREASED [None]
